FAERS Safety Report 25603764 (Version 1)
Quarter: 2025Q3

REPORT INFORMATION
  Report Type: Spontaneous
  Country: US (occurrence: US)
  Receive Date: 20250725
  Receipt Date: 20250725
  Transmission Date: 20251020
  Serious: Yes (Other)
  Sender: CIPLA
  Company Number: US-MLMSERVICE-20250704-PI566558-00256-1

PATIENT

DRUGS (1)
  1. PANTOPRAZOLE [Suspect]
     Active Substance: PANTOPRAZOLE
     Indication: Gastric antral vascular ectasia
     Dosage: 40 MILLIGRAM, QD
     Route: 065

REACTIONS (2)
  - Gastric xanthoma [Unknown]
  - Gastric polyps [Unknown]
